FAERS Safety Report 7631493-4 (Version None)
Quarter: 2011Q3

REPORT INFORMATION
  Report Type: 
  Country: None (occurrence: None)
  Receive Date: 20110725
  Receipt Date: 20110714
  Transmission Date: 20111222
  Serious: Yes (Hospitalization)
  Sender: FDA-Public Use
  Company Number: CH-BRISTOL-MYERS SQUIBB COMPANY-15905896

PATIENT
  Age: 73 Year
  Sex: Female

DRUGS (7)
  1. CRESTOR [Concomitant]
     Route: 048
  2. ISOPTIN [Suspect]
     Route: 048
     Dates: start: 20110225, end: 20110227
  3. GLUCOPHAGE [Suspect]
     Route: 048
     Dates: end: 20110227
  4. ALDACTONE [Suspect]
     Route: 048
     Dates: end: 20110227
  5. ENALAPRIL MALEATE [Suspect]
     Route: 048
  6. METOPROLOL TARTRATE [Suspect]
     Route: 048
     Dates: end: 20110227
  7. ASPIRIN [Concomitant]
     Dosage: ASS CARDIO
     Route: 048

REACTIONS (5)
  - RENAL FAILURE ACUTE [None]
  - CARDIOGENIC SHOCK [None]
  - ATRIOVENTRICULAR BLOCK COMPLETE [None]
  - LACTIC ACIDOSIS [None]
  - HYPERKALAEMIA [None]
